FAERS Safety Report 9394507 (Version 1)
Quarter: 2013Q3

REPORT INFORMATION
  Report Type: Spontaneous
  Country: AU (occurrence: AU)
  Receive Date: 20130711
  Receipt Date: 20130711
  Transmission Date: 20140515
  Serious: Yes (Other)
  Sender: FDA-Public Use
  Company Number: PHHY2013AU072894

PATIENT
  Age: 82 Year
  Sex: Female

DRUGS (1)
  1. ZOLEDRONIC ACID [Suspect]

REACTIONS (4)
  - Herpes zoster [Unknown]
  - Arthralgia [Unknown]
  - Fatigue [Unknown]
  - Rash [Unknown]
